FAERS Safety Report 4876311-2 (Version None)
Quarter: 2006Q1

REPORT INFORMATION
  Report Type: 
  Country: None (occurrence: None)
  Receive Date: 20060110
  Receipt Date: 20060105
  Transmission Date: 20060701
  Serious: Yes (Other)
  Sender: FDA-Public Use
  Company Number: GB-BOEHRINGER INGELHEIM PHARMACEUTICALS, INC.-2006-UK-00030UK

PATIENT
  Age: 68 Year
  Sex: Male

DRUGS (7)
  1. SPIRIVA [Suspect]
     Indication: CHRONIC OBSTRUCTIVE PULMONARY DISEASE
     Route: 055
     Dates: start: 20051129, end: 20051202
  2. SPIRIVA [Suspect]
     Indication: EMPHYSEMA
  3. BRICANYL [Concomitant]
     Dosage: 500 MCG 1 PUFF AS REQUIRED
     Route: 055
  4. CO-CODAMOL [Concomitant]
     Dosage: 8/500 1-2 FOUR TIMES DAILY AS REQUIRED
     Route: 065
  5. ISTIN [Concomitant]
     Route: 065
  6. SYMBICORT [Concomitant]
     Route: 065
  7. CANESTAN HC [Concomitant]
     Route: 061

REACTIONS (3)
  - LETHARGY [None]
  - LOSS OF CONSCIOUSNESS [None]
  - NAUSEA [None]
